FAERS Safety Report 5341612-0 (Version None)
Quarter: 2007Q2

REPORT INFORMATION
  Report Type: 
  Country: None (occurrence: None)
  Receive Date: 20070530
  Receipt Date: 20070515
  Transmission Date: 20071010
  Serious: Yes (Disabling)
  Sender: FDA-Public Use
  Company Number: 6033383

PATIENT
  Age: 50 Year
  Sex: Female

DRUGS (2)
  1. LEVOTHYROXINE SODIUM [Suspect]
     Indication: HYPOTHYROIDISM
     Dosage: 50 MCG ORAL
     Route: 048
     Dates: start: 19960615
  2. VIRAFERON (SOLUTION FOR INJECTION) (INTERFERON ALFA-2B) [Suspect]
     Indication: HEPATITIS C
     Dosage: 3 DOSAGES FORM/WEEK (3 IN 1 WK) SUBCUTANEOUS
     Route: 058
     Dates: start: 19980422, end: 19990414

REACTIONS (2)
  - CRYOGLOBULINAEMIA [None]
  - MYALGIA [None]
